FAERS Safety Report 11155015 (Version 1)
Quarter: 2015Q2

REPORT INFORMATION
  Report Type: Spontaneous
  Country: PL (occurrence: PL)
  Receive Date: 20150602
  Receipt Date: 20150602
  Transmission Date: 20150821
  Serious: Yes (Other)
  Sender: FDA-Public Use
  Company Number: PL-TEVA-566024ISR

PATIENT
  Age: 67 Year
  Sex: Female
  Weight: 43 kg

DRUGS (10)
  1. EUTHYROX [Concomitant]
     Active Substance: LEVOTHYROXINE SODIUM
     Indication: HYPOTHYROIDISM
     Route: 048
     Dates: start: 2002
  2. EFFERALGAN CODEINE [Concomitant]
     Active Substance: ACETAMINOPHEN\CODEINE PHOSPHATE
     Dosage: DOSE: 1 TABLET
     Route: 048
     Dates: start: 201209
  3. DIURESIN SR [Concomitant]
     Indication: HYPERTENSION
     Dosage: DOSE: FROM 2 TO 5 MG PER DAY
     Route: 048
     Dates: start: 201210
  4. ETOPIRYNA [Concomitant]
  5. GABAPENTIN. [Suspect]
     Active Substance: GABAPENTIN
     Dosage: SYSTEMATIC INCREASING OF DOSE TO 900 MG / DAY, THEN DECREASING DO 300 MG / DAY
     Route: 048
     Dates: start: 20121102, end: 20121116
  6. CLONAZEPAM. [Concomitant]
     Active Substance: CLONAZEPAM
     Route: 048
     Dates: start: 201209
  7. ESTROFEM [Concomitant]
     Active Substance: ESTRADIOL CYPIONATE
     Indication: HYPOTHYROIDISM
     Route: 048
     Dates: start: 2002
  8. KALDYUM [Concomitant]
     Active Substance: POTASSIUM CHLORIDE
     Indication: HYPERTENSION
     Dosage: DOSE: 1 TABLET
     Route: 048
     Dates: start: 2008
  9. MICARDIS [Concomitant]
     Active Substance: TELMISARTAN
     Indication: HYPERTENSION
     Dosage: DOSE: 1/2 TABLET
     Route: 048
     Dates: start: 2008
  10. BISOCARD [Concomitant]
     Active Substance: BISOPROLOL
     Indication: HYPERTENSION
     Route: 048
     Dates: start: 2008

REACTIONS (4)
  - Asthenia [Recovered/Resolved]
  - Balance disorder [Recovered/Resolved]
  - Blood pressure decreased [Recovered/Resolved]
  - Confusional state [Recovered/Resolved]

NARRATIVE: CASE EVENT DATE: 20121103
